FAERS Safety Report 11163898 (Version 2)
Quarter: 2015Q2

REPORT INFORMATION
  Report Type: Spontaneous
  Country: US (occurrence: US)
  Receive Date: 20150604
  Receipt Date: 20150623
  Transmission Date: 20150821
  Serious: No
  Sender: FDA-Public Use
  Company Number: US-BAYER-2015-282288

PATIENT
  Age: 45 Year
  Sex: Female

DRUGS (2)
  1. BETASERON [Suspect]
     Active Substance: INTERFERON BETA-1B
     Indication: MULTIPLE SCLEROSIS
     Dosage: 0.250 MG, QOD
     Route: 058
  2. BETASERON [Suspect]
     Active Substance: INTERFERON BETA-1B
     Indication: MULTIPLE SCLEROSIS
     Dosage: 0.187 MG, QOD
     Route: 058
     Dates: start: 20150509

REACTIONS (10)
  - Injection site rash [None]
  - Arthropod bite [None]
  - Injection site mass [Not Recovered/Not Resolved]
  - Injection site erythema [None]
  - Injection site erythema [None]
  - Injection site bruising [None]
  - Injection site pain [Not Recovered/Not Resolved]
  - Injection site mass [Recovering/Resolving]
  - Constipation [None]
  - Injection site swelling [Not Recovered/Not Resolved]

NARRATIVE: CASE EVENT DATE: 20150527
